FAERS Safety Report 15006874 (Version 1)
Quarter: 2018Q2

REPORT INFORMATION
  Report Type: Report from Study
  Country: US (occurrence: US)
  Receive Date: 20180613
  Receipt Date: 20180613
  Transmission Date: 20180711
  Serious: No
  Sender: FDA-Public Use
  Company Number: US-US WORLDMEDS, LLC-USW201803-000450

PATIENT
  Age: 48 Year
  Sex: Female
  Weight: 56.69 kg

DRUGS (6)
  1. CARBIDOPA-LEVODOPA [Concomitant]
     Active Substance: CARBIDOPA\LEVODOPA
  2. MIRAPEX [Concomitant]
     Active Substance: PRAMIPEXOLE DIHYDROCHLORIDE
  3. MICARDIS [Concomitant]
     Active Substance: TELMISARTAN
  4. ALLEGRA [Concomitant]
     Active Substance: FEXOFENADINE HYDROCHLORIDE
  5. APOKYN [Suspect]
     Active Substance: APOMORPHINE HYDROCHLORIDE
     Indication: PARKINSON^S DISEASE
     Route: 058
     Dates: start: 20161101
  6. CARBIDOPA-LEVODOPA [Concomitant]
     Active Substance: CARBIDOPA\LEVODOPA

REACTIONS (8)
  - Feeling abnormal [Recovered/Resolved]
  - Decreased appetite [Recovered/Resolved]
  - Anxiety [Recovered/Resolved]
  - Dehydration [Recovered/Resolved]
  - Abdominal discomfort [Recovered/Resolved]
  - Vision blurred [Recovered/Resolved]
  - Blood potassium decreased [Recovered/Resolved]
  - Panic attack [Recovered/Resolved]

NARRATIVE: CASE EVENT DATE: 20180315
